FAERS Safety Report 7766353-1 (Version None)
Quarter: 2011Q3

REPORT INFORMATION
  Report Type: 
  Country: None (occurrence: None)
  Receive Date: 20110922
  Receipt Date: 20110913
  Transmission Date: 20111222
  Serious: Yes (Hospitalization)
  Sender: FDA-Public Use
  Company Number: US-BIOGENIDEC-2011BI027948

PATIENT
  Age: 40 Year
  Sex: Male
  Weight: 72 kg

DRUGS (9)
  1. TOPAMAX [Concomitant]
     Route: 048
  2. VESICARE [Concomitant]
     Route: 048
  3. TYSABRI [Suspect]
     Route: 042
     Dates: start: 20040101, end: 20050101
  4. GABAPENTIN [Concomitant]
     Route: 048
  5. TYSABRI [Suspect]
     Route: 042
     Dates: start: 20110613, end: 20110711
  6. TYSABRI [Suspect]
     Indication: MULTIPLE SCLEROSIS
     Route: 042
     Dates: start: 20110613, end: 20110711
  7. CRANBERRY PILLS [Concomitant]
     Indication: BLADDER DISORDER
  8. ESCITALOPRAM [Concomitant]
     Route: 048
  9. TIZANIDINE HCL [Concomitant]
     Route: 048

REACTIONS (2)
  - DRUG SPECIFIC ANTIBODY PRESENT [None]
  - HYPERSENSITIVITY [None]
